FAERS Safety Report 23160648 (Version 1)
Quarter: 2023Q4

REPORT INFORMATION
  Report Type: Spontaneous
  Country: US (occurrence: US)
  Receive Date: 20231108
  Receipt Date: 20231108
  Transmission Date: 20240110
  Serious: Yes (Other)
  Sender: FDA-Public Use
  Company Number: US-SA-2023SA340224

PATIENT
  Age: 72 Year
  Sex: Female

DRUGS (7)
  1. IRBESARTAN [Suspect]
     Active Substance: IRBESARTAN
     Indication: Focal segmental glomerulosclerosis
     Dosage: UNK
  2. IRBESARTAN [Suspect]
     Active Substance: IRBESARTAN
     Indication: Nephrotic syndrome
  3. IRBESARTAN [Suspect]
     Active Substance: IRBESARTAN
     Indication: Focal segmental glomerulosclerosis
  4. THYMOGLOBULIN [Concomitant]
     Active Substance: LAPINE T-LYMPHOCYTE IMMUNE GLOBULIN
     Dosage: UNK
  5. TACROLIMUS [Concomitant]
     Active Substance: TACROLIMUS
     Dosage: UNK
  6. MYCOPHENOLATE MOFETIL [Concomitant]
     Active Substance: MYCOPHENOLATE MOFETIL
     Dosage: UNK
  7. CORTICOSTEROID NOS [Concomitant]
     Active Substance: CORTICOSTEROID NOS
     Dosage: UNK

REACTIONS (4)
  - Hyperkalaemia [Unknown]
  - Nephrotic syndrome [Recovering/Resolving]
  - Focal segmental glomerulosclerosis [Recovering/Resolving]
  - Proteinuria [Recovering/Resolving]
